FAERS Safety Report 19200096 (Version 1)
Quarter: 2021Q2

REPORT INFORMATION
  Report Type: Spontaneous
  Country: IT (occurrence: IT)
  Receive Date: 20210430
  Receipt Date: 20210430
  Transmission Date: 20210717
  Serious: Yes (Other)
  Sender: FDA-Public Use
  Company Number: IT-MYLANLABS-2021M1025462

PATIENT
  Sex: Female

DRUGS (11)
  1. LAMOTRIGINE. [Suspect]
     Active Substance: LAMOTRIGINE
     Indication: GENERALISED TONIC-CLONIC SEIZURE
     Dosage: UNK
     Route: 065
  2. CARBAMAZEPINE. [Suspect]
     Active Substance: CARBAMAZEPINE
     Indication: GENERALISED TONIC-CLONIC SEIZURE
     Dosage: UNK
     Route: 065
  3. PERAMPANEL [Suspect]
     Active Substance: PERAMPANEL
     Indication: EPILEPTIC ENCEPHALOPATHY
     Dosage: 2 MILLIGRAM, QD, TITRATION STARTED AT THE DOSE OF 2MG/DAY
     Route: 065
  4. PERAMPANEL [Suspect]
     Active Substance: PERAMPANEL
     Dosage: 4 MILLIGRAM, QD, UPTITRATED IN SECOND AND THIRD MONTH
     Route: 065
  5. PERAMPANEL [Suspect]
     Active Substance: PERAMPANEL
     Dosage: 6 MILLIGRAM, QD, LAST DOSAGE
     Route: 065
  6. LEVETIRACETAM. [Suspect]
     Active Substance: LEVETIRACETAM
     Indication: GENERALISED TONIC-CLONIC SEIZURE
     Dosage: UNK
     Route: 065
  7. HYDROCORTISONE. [Suspect]
     Active Substance: HYDROCORTISONE
     Indication: GENERALISED TONIC-CLONIC SEIZURE
     Dosage: UNK
     Route: 065
  8. ACTH [Suspect]
     Active Substance: CORTICOTROPIN
     Indication: GENERALISED TONIC-CLONIC SEIZURE
     Dosage: UNK
     Route: 065
  9. PERAMPANEL [Suspect]
     Active Substance: PERAMPANEL
     Dosage: 5 MILLIGRAM, QD, INCREASED TO 5MG/DAY DUE TO MILD RELAPSES
     Route: 065
  10. VALPROATE [Suspect]
     Active Substance: VALPROIC ACID
     Indication: GENERALISED TONIC-CLONIC SEIZURE
     Dosage: 30 MILLIGRAM/KILOGRAM, QD
     Route: 065
  11. NITRAZEPAM [Concomitant]
     Active Substance: NITRAZEPAM
     Indication: GENERALISED TONIC-CLONIC SEIZURE
     Dosage: 5 MILLIGRAM, QD, ALONG WITH PERAMPANEL
     Route: 065

REACTIONS (1)
  - Drug ineffective [Unknown]
